FAERS Safety Report 7060816-2 (Version None)
Quarter: 2010Q4

REPORT INFORMATION
  Report Type: 
  Country: None (occurrence: None)
  Receive Date: 20101025
  Receipt Date: 20101018
  Transmission Date: 20110411
  Serious: Yes (Death, Hospitalization, Other)
  Sender: FDA-Public Use
  Company Number: IT-ELI_LILLY_AND_COMPANY-IT201010004483

PATIENT
  Age: 80 Year
  Sex: Male

DRUGS (5)
  1. ALIMTA [Suspect]
     Indication: PLEURAL MESOTHELIOMA
     Dosage: 850 MG, TOTAL
     Route: 065
     Dates: start: 20100802, end: 20100802
  2. ALFUZOSIN HCL [Concomitant]
     Indication: BENIGN PROSTATIC HYPERPLASIA
     Dosage: 1 D/F, DAILY (1/D)
     Route: 048
  3. LEUKERAN [Concomitant]
     Indication: CHRONIC LYMPHOCYTIC LEUKAEMIA
     Dates: end: 20100301
  4. VITAMINS [Concomitant]
     Dosage: STANDARD
  5. CORTISONE [Concomitant]
     Dosage: STANDARD
     Route: 065

REACTIONS (1)
  - PANCYTOPENIA [None]
